FAERS Safety Report 6333016-9 (Version None)
Quarter: 2009Q3

REPORT INFORMATION
  Report Type: 
  Country: None (occurrence: None)
  Receive Date: 20090828
  Receipt Date: 20090826
  Transmission Date: 20100115
  Serious: Yes (Death, Other)
  Sender: FDA-Public Use
  Company Number: PHHY2009BR36263

PATIENT
  Sex: Male

DRUGS (1)
  1. FORASEQ [Suspect]
     Indication: EMPHYSEMA
     Dosage: UNK

REACTIONS (2)
  - METASTASIS [None]
  - PROSTATE CANCER [None]
